FAERS Safety Report 10735694 (Version 1)
Quarter: 2015Q1

REPORT INFORMATION
  Report Type: Spontaneous
  Country: US (occurrence: US)
  Receive Date: 20150126
  Receipt Date: 20150126
  Transmission Date: 20150721
  Serious: No
  Sender: FDA-Public Use
  Company Number: US-ASTRAZENECA-2015SE05195

PATIENT
  Age: 43 Year
  Sex: Female
  Weight: 81.6 kg

DRUGS (7)
  1. CLONINTRAMINE [Concomitant]
     Indication: OBSESSIVE-COMPULSIVE DISORDER
     Route: 048
     Dates: start: 1995
  2. QUETIAPINE FUMURATE [Suspect]
     Active Substance: QUETIAPINE FUMARATE
     Indication: HALLUCINATIONS, MIXED
     Dosage: TAKES A 200MG TABLET AND SPLITS IT IN HALF FOR A TOTAL DOSE OF 300MG/DAY
     Route: 048
  3. LITHIUM CARBONATE. [Concomitant]
     Active Substance: LITHIUM CARBONATE
     Indication: BIPOLAR DISORDER
     Route: 048
     Dates: start: 1995
  4. QUETIAPINE FUMURATE [Suspect]
     Active Substance: QUETIAPINE FUMARATE
     Indication: HALLUCINATIONS, MIXED
     Route: 048
  5. KLONOPIN [Concomitant]
     Active Substance: CLONAZEPAM
     Route: 048
     Dates: start: 1995
  6. METOPROLOL TARTRATE. [Concomitant]
     Active Substance: METOPROLOL TARTRATE
     Route: 048
  7. SERTRALINE [Concomitant]
     Active Substance: SERTRALINE HYDROCHLORIDE
     Indication: DEPRESSION
     Route: 048
     Dates: start: 1985

REACTIONS (8)
  - Drug dose omission [Unknown]
  - Basedow^s disease [Unknown]
  - Nasopharyngitis [Unknown]
  - Intentional product misuse [Unknown]
  - Thyroid function test abnormal [Unknown]
  - Nasal congestion [Not Recovered/Not Resolved]
  - Heart rate irregular [Unknown]
  - Heart rate increased [Unknown]

NARRATIVE: CASE EVENT DATE: 2005
